FAERS Safety Report 8452767-3 (Version None)
Quarter: 2012Q2

REPORT INFORMATION
  Report Type: 
  Country: None (occurrence: None)
  Receive Date: 20120620
  Receipt Date: 20120425
  Transmission Date: 20120825
  Serious: No
  Sender: FDA-Public Use
  Company Number: US-VERTEX PHARMACEUTICALS INC.-AE-2012-005957

PATIENT
  Sex: Female
  Weight: 47.67 kg

DRUGS (6)
  1. VITAMIN D [Concomitant]
  2. INCIVEK [Suspect]
     Indication: HEPATITIS C
     Route: 048
     Dates: start: 20120413
  3. PEGASYS [Concomitant]
     Indication: HEPATITIS C
     Route: 058
     Dates: start: 20120413
  4. ATENOLOL [Concomitant]
  5. RIBAVIRIN [Concomitant]
     Indication: HEPATITIS C
     Route: 048
     Dates: start: 20120413
  6. LEVOTHYROXINE SODIUM [Concomitant]

REACTIONS (9)
  - DECREASED APPETITE [None]
  - CONFUSIONAL STATE [None]
  - ANAL PRURITUS [None]
  - VOMITING [None]
  - ANORECTAL DISCOMFORT [None]
  - NAUSEA [None]
  - INFLUENZA LIKE ILLNESS [None]
  - FATIGUE [None]
  - HAEMORRHOIDS [None]
